FAERS Safety Report 10257763 (Version 1)
Quarter: 2014Q2

REPORT INFORMATION
  Report Type: Spontaneous
  Country: FR (occurrence: FR)
  Receive Date: 20140625
  Receipt Date: 20140625
  Transmission Date: 20141212
  Serious: Yes (Death, Hospitalization)
  Sender: FDA-Public Use
  Company Number: FR-TEVA-489806ISR

PATIENT
  Age: 65 Year
  Sex: Male

DRUGS (8)
  1. VERAPAMIL RATIOPHARM 40 MG [Suspect]
     Dosage: 3 TABLET DAILY;
     Route: 048
  2. NOVONORM 0.5 MG [Suspect]
     Dosage: 3 TABLET DAILY;
     Route: 048
  3. APROVEL 150 MG [Suspect]
     Dosage: 1 TABLET DAILY;
     Route: 048
  4. FLUDEX 1.5 MG [Suspect]
     Dosage: 1 TABLET DAILY;
     Route: 048
  5. INEGY 10 MG/40 MG [Suspect]
     Dosage: 1 TABLET DAILY; EZETIMIBE 10 MG / SIMVASTATINE 40 MG
     Route: 048
  6. PREVISCAN 20 MG [Suspect]
     Dosage: .1429 TABLET DAILY;
     Route: 048
  7. LEVOTHYROX 25 MCG [Suspect]
     Dosage: 1.5 TABLET DAILY;
     Route: 048
  8. SYMBICORT TURBUHALER 200/6 MCG PER DOSE [Suspect]
     Dosage: 2 DOSAGE FORMS DAILY;
     Route: 055

REACTIONS (21)
  - Eosinophilia [Not Recovered/Not Resolved]
  - Cardiogenic shock [None]
  - Respiratory distress [None]
  - Cyanosis [None]
  - Rales [None]
  - Crepitations [None]
  - Inflammation [None]
  - Leukocytosis [None]
  - Blood disorder [None]
  - International normalised ratio increased [None]
  - Renal failure chronic [None]
  - Hyponatraemia [None]
  - Hyperkalaemia [None]
  - Hepatocellular injury [None]
  - Sinus arrhythmia [None]
  - Atrial fibrillation [None]
  - Bundle branch block left [None]
  - Cardiac murmur [None]
  - Cardiac failure [None]
  - Cardiomyopathy [None]
  - Pneumonia staphylococcal [None]
